FAERS Safety Report 4888175-1 (Version None)
Quarter: 2006Q1

REPORT INFORMATION
  Report Type: 
  Country: None (occurrence: None)
  Receive Date: 20060119
  Receipt Date: 20060119
  Transmission Date: 20060701
  Serious: No
  Sender: FDA-Public Use
  Company Number: None

PATIENT
  Sex: Male

DRUGS (2)
  1. TERAZOSIN [Suspect]
     Indication: HYPERTENSION
     Dosage: 4 MG Q AM PO
     Route: 048
     Dates: start: 20060104, end: 20060105
  2. HYDROCHLOROTHIAZIDE [Suspect]
     Indication: HYPERTENSION
     Dosage: 25 MG DAILY PO
     Route: 048

REACTIONS (2)
  - DIZZINESS [None]
  - FALL [None]
